FAERS Safety Report 8621677-0 (Version None)
Quarter: 2012Q3

REPORT INFORMATION
  Report Type: 
  Country: None (occurrence: None)
  Receive Date: 20120825
  Receipt Date: 20120731
  Transmission Date: 20120928
  Serious: No
  Sender: FDA-Public Use
  Company Number: US-009507513-1208USA001197

PATIENT

DRUGS (2)
  1. PEG-INTRON [Suspect]
     Indication: HEPATITIS C
     Dosage: UNK
     Dates: start: 20120713
  2. REBETOL [Suspect]
     Indication: HEPATITIS C
     Dosage: UNK
     Dates: start: 20120713

REACTIONS (8)
  - COORDINATION ABNORMAL [None]
  - PAIN IN EXTREMITY [None]
  - DYSGEUSIA [None]
  - MEMORY IMPAIRMENT [None]
  - FATIGUE [None]
  - BURNING SENSATION [None]
  - MYALGIA [None]
  - DRUG DOSE OMISSION [None]
